FAERS Safety Report 9961926 (Version 1)
Quarter: 2014Q1

REPORT INFORMATION
  Report Type: Spontaneous
  Country: US (occurrence: None)
  Receive Date: 20140304
  Receipt Date: 20140304
  Transmission Date: 20141002
  Serious: Yes (Hospitalization)
  Sender: FDA-Public Use
  Company Number: None

PATIENT
  Age: 65 Year
  Sex: Male

DRUGS (2)
  1. MIDAZOLAM [Suspect]
     Route: 042
     Dates: start: 20140222, end: 20140222
  2. FENTANYL [Suspect]
     Route: 042

REACTIONS (1)
  - Delirium [None]
